FAERS Safety Report 9785860 (Version 1)
Quarter: 2013Q4

REPORT INFORMATION
  Report Type: Spontaneous
  Country: ES (occurrence: None)
  Receive Date: 20131223
  Receipt Date: 20131223
  Transmission Date: 20140711
  Serious: Yes (Death, Hospitalization)
  Sender: FDA-Public Use
  Company Number: A1054047A

PATIENT
  Age: 68 Year
  Sex: Female

DRUGS (2)
  1. LAPATINIB [Suspect]
     Indication: BREAST CANCER METASTATIC
  2. RADIOTHERAPY [Suspect]
     Indication: BREAST CANCER METASTATIC

REACTIONS (1)
  - Parkinsonism [None]
